FAERS Safety Report 21075062 (Version 1)
Quarter: 2022Q3

REPORT INFORMATION
  Report Type: Report from Study
  Country: TH (occurrence: None)
  Receive Date: 20220713
  Receipt Date: 20220713
  Transmission Date: 20221027
  Serious: Yes (Death, Other)
  Sender: FDA-Public Use
  Company Number: 2021A900682

PATIENT
  Age: 28830 Day
  Sex: Female

DRUGS (6)
  1. TAGRISSO [Suspect]
     Active Substance: OSIMERTINIB
     Indication: EGFR gene mutation
     Route: 048
     Dates: start: 20211117, end: 20211207
  2. DRUG FOR HYPERLIPIDEMIA [Concomitant]
     Dosage: 1 TAB OD
     Route: 065
  3. DRUG FOR DIABETES MELLITUS [Concomitant]
     Dosage: 1/2 TAB BID
     Route: 065
  4. DRUG FOR HYPERTENSION [Concomitant]
     Dosage: 1 TAB OD
     Route: 065
  5. VITAMINS [Concomitant]
     Active Substance: VITAMINS
     Dosage: 1 TAB OD
     Route: 065
  6. VITAMINS [Concomitant]
     Active Substance: VITAMINS
     Dosage: 1 TAB BID
     Route: 065

REACTIONS (2)
  - Malignant neoplasm progression [Unknown]
  - Death [Fatal]

NARRATIVE: CASE EVENT DATE: 20211207
